FAERS Safety Report 23594075 (Version 1)
Quarter: 2024Q1

REPORT INFORMATION
  Report Type: Spontaneous
  Country: CA (occurrence: CA)
  Receive Date: 20240305
  Receipt Date: 20240305
  Transmission Date: 20240410
  Serious: Yes (Other)
  Sender: FDA-Public Use
  Company Number: CA-CELLTRION INC.-2023CA024353

PATIENT

DRUGS (5)
  1. INFLECTRA [Suspect]
     Active Substance: INFLIXIMAB-DYYB
     Indication: Crohn^s disease
     Dosage: EVERY 5 TO 6 WEEKS
     Route: 042
     Dates: start: 20220524
  2. INFLECTRA [Suspect]
     Active Substance: INFLIXIMAB-DYYB
     Dosage: EVERY 5 TO 6 WEEKS
     Route: 042
     Dates: start: 20231103
  3. INFLECTRA [Suspect]
     Active Substance: INFLIXIMAB-DYYB
     Dosage: (7.5 MG/KG), AFTER 6 WEEKS, PRESCRIBED EVERY 5 TO 6 WEEKS
     Route: 042
     Dates: start: 20231215
  4. INFLECTRA [Suspect]
     Active Substance: INFLIXIMAB-DYYB
     Dosage: (7.5 MG/KG) AFTER 4 WEEKS AND 6 DAYS, PRESCRIBED EVERY 5 TO 6 WEEKS
     Route: 042
     Dates: start: 20240118
  5. INFLECTRA [Suspect]
     Active Substance: INFLIXIMAB-DYYB
     Dosage: 5 WEEKS
     Route: 042
     Dates: start: 20240222

REACTIONS (8)
  - Uveitis [Recovered/Resolved]
  - Bacterial infection [Recovered/Resolved]
  - Cellulitis [Recovered/Resolved]
  - Malaise [Unknown]
  - Mouth ulceration [Recovered/Resolved]
  - Aphthous ulcer [Recovered/Resolved]
  - Off label use [Unknown]
  - Intentional product use issue [Unknown]

NARRATIVE: CASE EVENT DATE: 20220101
